FAERS Safety Report 5871626-3 (Version None)
Quarter: 2008Q3

REPORT INFORMATION
  Report Type: 
  Country: None (occurrence: None)
  Receive Date: 20080904
  Receipt Date: 20080904
  Transmission Date: 20090109
  Serious: Yes (Disabling, Other)
  Sender: FDA-Public Use
  Company Number: None

PATIENT
  Sex: Male
  Weight: 66.6788 kg

DRUGS (4)
  1. PRAVASTATIN SODIUM [Suspect]
     Indication: BLOOD CHOLESTEROL
     Dosage: 10 MG - 5 MG 1/DAY MAILED
     Dates: start: 20070101
  2. ROSUVASTATIN CALCIUM [Suspect]
     Indication: BLOOD CHOLESTEROL
     Dosage: 10 MG - 5 MG 1/DAY MAILED
     Dates: start: 20070101
  3. FENOFIBRATE (MICRONIZED) [Suspect]
     Indication: BLOOD TRIGLYCERIDES
     Dosage: 12 MCG, 12 MG 1/DAY MAILED
     Dates: start: 20080801
  4. FORMOTEROL FUMARATE [Suspect]
     Indication: BLOOD TRIGLYCERIDES
     Dosage: 12 MCG, 12 MG 1/DAY MAILED
     Dates: start: 20080801

REACTIONS (5)
  - DYSSTASIA [None]
  - GAIT DISTURBANCE [None]
  - MUSCLE SPASMS [None]
  - MUSCULAR WEAKNESS [None]
  - MUSCULOSKELETAL DISORDER [None]
